FAERS Safety Report 5770547-4 (Version None)
Quarter: 2008Q2

REPORT INFORMATION
  Report Type: 
  Country: None (occurrence: None)
  Receive Date: 20080613
  Receipt Date: 20080506
  Transmission Date: 20081010
  Serious: No
  Sender: FDA-Public Use
  Company Number: US-ABBOTT-08P-163-0450580-00

PATIENT
  Sex: Male
  Weight: 81.72 kg

DRUGS (19)
  1. HUMIRA [Suspect]
     Indication: RHEUMATOID ARTHRITIS
     Route: 058
     Dates: start: 20080301
  2. ENALAPRIL MALEATE [Concomitant]
     Indication: HYPERTENSION
     Route: 048
  3. DIGOXIN [Concomitant]
     Indication: CARDIAC DISORDER
     Route: 048
  4. VENLAFAXINE HYDROCHLORIDE [Concomitant]
     Indication: DEPRESSION
     Route: 048
  5. JENUVIA [Concomitant]
     Indication: DIABETES MELLITUS
     Route: 048
  6. MONTELUKAST SODIUM [Concomitant]
     Indication: PAIN
     Route: 048
  7. ASPIRIN [Concomitant]
     Indication: DRUG USE FOR UNKNOWN INDICATION
     Route: 048
  8. ACETAMINOPHEN [Concomitant]
     Indication: HEADACHE
  9. DICLOFENAC [Concomitant]
     Indication: ARTHRITIS
     Route: 048
  10. VICODIN [Concomitant]
     Indication: PAIN
     Route: 048
  11. POTASSIUM CHLORIDE [Concomitant]
     Indication: MINERAL SUPPLEMENTATION
     Route: 048
  12. FUROSEMIDE [Concomitant]
     Indication: JOINT SWELLING
     Route: 048
  13. METFORMIN HCL [Concomitant]
     Indication: DIABETES MELLITUS
     Route: 048
  14. COLESEVELAM HYDROCHLORIDE [Concomitant]
     Indication: DIABETES MELLITUS
     Dosage: 625MG-3TABS IN AM
     Route: 048
  15. GLIPIZIDE [Concomitant]
     Indication: DIABETES MELLITUS
     Route: 048
  16. ALPRAZOLAM [Concomitant]
     Indication: ANXIETY
     Route: 048
  17. DOXAZOSIN MESYLATE [Concomitant]
     Indication: PROSTATIC DISORDER
     Route: 048
  18. DOXAZOSIN MESYLATE [Concomitant]
     Indication: DYSURIA
  19. ZOLPIDEM TARTRATE [Concomitant]
     Indication: SLEEP DISORDER THERAPY
     Dosage: 10MG-1.5 TABS AT BEDTIME
     Route: 048

REACTIONS (3)
  - INFLUENZA [None]
  - JOINT RANGE OF MOTION DECREASED [None]
  - PAIN [None]
